FAERS Safety Report 15386825 (Version 10)
Quarter: 2020Q2

REPORT INFORMATION
  Report Type: Spontaneous
  Country: US (occurrence: US)
  Receive Date: 20180914
  Receipt Date: 20200511
  Transmission Date: 20200713
  Serious: Yes (Other)
  Sender: FDA-Public Use
  Company Number: US-PFIZER INC-2016256287

PATIENT
  Age: 50 Year
  Sex: Female
  Weight: 136 kg

DRUGS (4)
  1. LYRICA [Suspect]
     Active Substance: PREGABALIN
     Indication: BACK PAIN
     Dosage: 75 MG, 2X/DAY
     Route: 048
  2. LYRICA [Suspect]
     Active Substance: PREGABALIN
     Indication: NEUROPATHY PERIPHERAL
  3. LYRICA [Suspect]
     Active Substance: PREGABALIN
     Indication: PAIN
     Dosage: 150 MG, 3X/DAY(THREE WHITE CAPSULES A DAY/450MG A DAY)
  4. LYRICA [Suspect]
     Active Substance: PREGABALIN
     Indication: FIBROMYALGIA

REACTIONS (5)
  - Ankle fracture [Unknown]
  - Impaired driving ability [Unknown]
  - Road traffic accident [Unknown]
  - Rib fracture [Unknown]
  - Hypotension [Unknown]

NARRATIVE: CASE EVENT DATE: 201902
